FAERS Safety Report 18714581 (Version 2)
Quarter: 2021Q1

REPORT INFORMATION
  Report Type: Spontaneous
  Country: AU (occurrence: AU)
  Receive Date: 20210107
  Receipt Date: 20210218
  Transmission Date: 20210419
  Serious: Yes (Hospitalization, Other)
  Sender: FDA-Public Use
  Company Number: AU-ABBVIE-21K-008-3715700-00

PATIENT
  Age: 52 Year
  Sex: Female

DRUGS (14)
  1. ROSUVASTATIN. [Concomitant]
     Active Substance: ROSUVASTATIN
     Indication: DYSLIPIDAEMIA
  2. EFAVIRENZ. [Suspect]
     Active Substance: EFAVIRENZ
     Indication: HIV INFECTION
     Route: 065
  3. ZIDOVUDINE. [Suspect]
     Active Substance: ZIDOVUDINE
     Indication: HIV INFECTION
     Route: 065
  4. ASPIRIN. [Concomitant]
     Active Substance: ASPIRIN
     Indication: MYOCARDIAL ISCHAEMIA
     Route: 065
  5. MIRTAZAPINE. [Concomitant]
     Active Substance: MIRTAZAPINE
     Indication: DEPRESSION
  6. GENVOYA [Suspect]
     Active Substance: COBICISTAT\ELVITEGRAVIR\EMTRICITABINE\TENOFOVIR ALAFENAMIDE FUMARATE
     Indication: HIV INFECTION
     Route: 065
     Dates: start: 201601
  7. ATENOLOL. [Concomitant]
     Active Substance: ATENOLOL
     Indication: PRODUCT USED FOR UNKNOWN INDICATION
  8. ABACAVIR SULPHATE [Concomitant]
     Active Substance: ABACAVIR
     Indication: PRODUCT USED FOR UNKNOWN INDICATION
  9. NORVIR [Suspect]
     Active Substance: RITONAVIR
     Indication: PRODUCT USED FOR UNKNOWN INDICATION
     Route: 048
  10. THIAMINE. [Concomitant]
     Active Substance: THIAMINE
     Indication: PRODUCT USED FOR UNKNOWN INDICATION
  11. SODIUM VALPROATE [Concomitant]
     Active Substance: VALPROATE SODIUM
     Indication: PRODUCT USED FOR UNKNOWN INDICATION
  12. ABACAVIR SULFATE;LAMIVUDINE [Suspect]
     Active Substance: ABACAVIR SULFATE\LAMIVUDINE
     Indication: HIV INFECTION
     Route: 065
     Dates: start: 2012
  13. DARUNAVIR [Suspect]
     Active Substance: DARUNAVIR
     Indication: HIV INFECTION
     Route: 065
     Dates: start: 2012
  14. LAMIVUDINE. [Suspect]
     Active Substance: LAMIVUDINE
     Indication: HIV INFECTION
     Route: 065

REACTIONS (23)
  - Pathogen resistance [Unknown]
  - Viral mutation identified [Unknown]
  - Viraemia [Unknown]
  - Cerebellar syndrome [Not Recovered/Not Resolved]
  - Confusional state [Recovering/Resolving]
  - Disorientation [Recovering/Resolving]
  - Central nervous system inflammation [Recovering/Resolving]
  - Magnetic resonance imaging brain abnormal [Recovering/Resolving]
  - HIV-associated neurocognitive disorder [Recovering/Resolving]
  - Chorea [Recovered/Resolved]
  - Gait disturbance [Recovering/Resolving]
  - Behaviour disorder [Not Recovered/Not Resolved]
  - Loss of personal independence in daily activities [Recovering/Resolving]
  - Meningitis viral [Unknown]
  - Treatment noncompliance [Unknown]
  - Parainfluenzae virus infection [Unknown]
  - Dysdiadochokinesis [Recovering/Resolving]
  - Hypophagia [Recovering/Resolving]
  - Dysarthria [Recovering/Resolving]
  - Rhinitis [Unknown]
  - Past-pointing [Unknown]
  - Meningoencephalitis viral [Unknown]
  - HIV-associated neurocognitive disorder [Recovering/Resolving]

NARRATIVE: CASE EVENT DATE: 2012
